FAERS Safety Report 22312719 (Version 2)
Quarter: 2023Q2

REPORT INFORMATION
  Report Type: Spontaneous
  Country: RU (occurrence: RU)
  Receive Date: 20230512
  Receipt Date: 20230529
  Transmission Date: 20230722
  Serious: Yes (Hospitalization, Other)
  Sender: FDA-Public Use
  Company Number: RU-Accord-357608

PATIENT
  Age: 10 Month
  Sex: Male
  Weight: 8.6 kg

DRUGS (2)
  1. TACROLIMUS [Suspect]
     Active Substance: TACROLIMUS
     Indication: Immunosuppressant drug therapy
  2. URSODIOL [Concomitant]
     Active Substance: URSODIOL

REACTIONS (13)
  - Pancytopenia [Recovering/Resolving]
  - Dyspepsia [Recovering/Resolving]
  - Acute kidney injury [Recovering/Resolving]
  - Gastritis [Unknown]
  - Colitis [Unknown]
  - Hypokalaemia [Recovering/Resolving]
  - Hypoalbuminaemia [Recovering/Resolving]
  - Face oedema [Unknown]
  - Pyrexia [Unknown]
  - Drug intolerance [Recovering/Resolving]
  - Acute respiratory distress syndrome [Recovering/Resolving]
  - Intestinal perforation [Recovering/Resolving]
  - Anaemia [Recovered/Resolved]
